FAERS Safety Report 9660720 (Version 1)
Quarter: 2013Q4

REPORT INFORMATION
  Report Type: Spontaneous
  Country: CL (occurrence: CL)
  Receive Date: 20131031
  Receipt Date: 20131031
  Transmission Date: 20140711
  Serious: Yes (Other)
  Sender: FDA-Public Use
  Company Number: CL-PFIZER INC-2013308299

PATIENT
  Sex: Male

DRUGS (2)
  1. XALATAN [Suspect]
     Indication: CATARACT
  2. XALACOM [Suspect]
     Dosage: UNK
     Dates: start: 201302

REACTIONS (4)
  - Eye irritation [Unknown]
  - Visual acuity reduced [Unknown]
  - Drug dispensing error [Unknown]
  - Off label use [Unknown]
